FAERS Safety Report 4958205-7 (Version None)
Quarter: 2006Q1

REPORT INFORMATION
  Report Type: 
  Country: None (occurrence: None)
  Receive Date: 20060324
  Receipt Date: 20060314
  Transmission Date: 20060701
  Serious: Yes (Hospitalization)
  Sender: FDA-Public Use
  Company Number: 2006032620

PATIENT
  Age: 72 Year
  Sex: Female

DRUGS (7)
  1. XALATAN [Suspect]
     Indication: GLAUCOMA
     Dosage: 1.5 MCG (1.5 MCG, 1 IN 1 D), OPHTHALMIC
     Route: 047
     Dates: start: 20000726
  2. CORTICOSTEROIDS (CORTICOSTEROIDS) [Suspect]
     Indication: HYPERSENSITIVITY
     Dosage: (AS NEEDED, ORAL
     Route: 048
  3. POLARAMINE [Suspect]
     Indication: HYPERSENSITIVITY
     Dosage: (AS NEEDED)
  4. COSOPT [Concomitant]
  5. ALL OTHER THERAPEUTIC PRODUCTS (ALL OTHER THERAPEUTIC PRODUCTS) [Concomitant]
  6. GINKGO BILOBA (GINKGO BILOBA) [Concomitant]
  7. VINPOCETINE (VINPOCETINE) [Concomitant]

REACTIONS (3)
  - DRUG INEFFECTIVE [None]
  - INTRAOCULAR PRESSURE INCREASED [None]
  - VOMITING [None]
